FAERS Safety Report 4475520-4 (Version None)
Quarter: 2004Q4

REPORT INFORMATION
  Report Type: 
  Country: None (occurrence: None)
  Receive Date: 20041014
  Receipt Date: 20041014
  Transmission Date: 20050328
  Serious: Yes (Hospitalization)
  Sender: FDA-Public Use
  Company Number: None

PATIENT
  Age: 83 Year
  Sex: Male
  Weight: 80.1 kg

DRUGS (5)
  1. DIGOXIN [Suspect]
     Indication: CARDIAC FAILURE
     Dosage: 0.125 MG QD ORAL
     Route: 048
  2. CEPHALEXIN [Concomitant]
  3. FELODIPINE [Concomitant]
  4. HYDROCHLOROTHIAZIDE [Concomitant]
  5. NAPROXEN [Concomitant]

REACTIONS (4)
  - CHEST DISCOMFORT [None]
  - ELECTROCARDIOGRAM ST SEGMENT ABNORMAL [None]
  - SINUS BRADYCARDIA [None]
  - THERAPEUTIC AGENT TOXICITY [None]
